FAERS Safety Report 12804128 (Version 1)
Quarter: 2016Q4

REPORT INFORMATION
  Report Type: Spontaneous
  Country: US (occurrence: US)
  Receive Date: 20161002
  Receipt Date: 20161002
  Transmission Date: 20170207
  Serious: No
  Sender: FDA-Public Use
  Company Number: None

PATIENT
  Age: 60 Year
  Sex: Female
  Weight: 58.5 kg

DRUGS (1)
  1. VENLAFAXINE HCL [Suspect]
     Active Substance: VENLAFAXINE HYDROCHLORIDE
     Indication: TRIGEMINAL NEURALGIA
     Route: 048
     Dates: start: 20151201

REACTIONS (3)
  - Abnormal dreams [None]
  - Pain in extremity [None]
  - Constipation [None]

NARRATIVE: CASE EVENT DATE: 20160701
